FAERS Safety Report 9625116 (Version 1)
Quarter: 2013Q4

REPORT INFORMATION
  Report Type: Spontaneous
  Country: US (occurrence: None)
  Receive Date: 20131015
  Receipt Date: 20131015
  Transmission Date: 20140711
  Serious: No
  Sender: FDA-Public Use
  Company Number: None

PATIENT
  Age: 76 Year
  Sex: Female

DRUGS (6)
  1. ATORVASTATIN CALCIUM [Suspect]
     Indication: BLOOD CHOLESTEROL
  2. UNSPECIFIED INGREDIENT [Concomitant]
  3. CARVEDILOL [Concomitant]
  4. LEVOTHYROXIN [Concomitant]
  5. NIFEDIPINE [Concomitant]
  6. OXYBUTYNIN ER [Concomitant]

REACTIONS (2)
  - Blood glucose increased [None]
  - Blood pressure increased [None]
